FAERS Safety Report 5084438-8 (Version None)
Quarter: 2006Q3

REPORT INFORMATION
  Report Type: 
  Country: None (occurrence: None)
  Receive Date: 20060821
  Receipt Date: 20060808
  Transmission Date: 20061208
  Serious: Yes (Hospitalization)
  Sender: FDA-Public Use
  Company Number: FR-GLAXOSMITHKLINE-B0434170A

PATIENT
  Age: 12 Day
  Sex: Female
  Weight: 2.6 kg

DRUGS (4)
  1. RETROVIR [Suspect]
     Indication: ANTIVIRAL PROPHYLAXIS
     Route: 048
     Dates: start: 20040204, end: 20040216
  2. COMBIVIR [Suspect]
     Dates: start: 20020101
  3. RETROVIR [Suspect]
     Dosage: 1INJ SINGLE DOSE
     Dates: start: 20040204, end: 20040204
  4. VIRAMUNE [Concomitant]
     Dates: start: 20020101

REACTIONS (4)
  - ANAEMIA MACROCYTIC [None]
  - BLOOD LACTIC ACID INCREASED [None]
  - DRUG EXPOSURE DURING PREGNANCY [None]
  - GLUCOSE-6-PHOSPHATE DEHYDROGENASE DEFICIENCY [None]
